FAERS Safety Report 17983538 (Version 1)
Quarter: 2020Q3

REPORT INFORMATION
  Report Type: Report from Study
  Country: US (occurrence: US)
  Receive Date: 20200706
  Receipt Date: 20200706
  Transmission Date: 20201103
  Serious: Yes (Death, Other)
  Sender: FDA-Public Use
  Company Number: US-EISAI MEDICAL RESEARCH-EC-2020-075993

PATIENT
  Age: 61 Year
  Sex: Female
  Weight: 65 kg

DRUGS (1)
  1. LENVIMA [Suspect]
     Active Substance: LENVATINIB
     Indication: ENDOMETRIAL CANCER
     Route: 048
     Dates: start: 20200414, end: 20200513

REACTIONS (4)
  - Liver function test increased [Unknown]
  - Malignant neoplasm progression [Fatal]
  - Blood bilirubin increased [Not Recovered/Not Resolved]
  - Blood alkaline phosphatase increased [Unknown]

NARRATIVE: CASE EVENT DATE: 202005
